FAERS Safety Report 6412552-0 (Version None)
Quarter: 2009Q4

REPORT INFORMATION
  Report Type: 
  Country: None (occurrence: None)
  Receive Date: 20091023
  Receipt Date: 20091021
  Transmission Date: 20100525
  Serious: Yes (Life-Threatening, Hospitalization, Other)
  Sender: FDA-Public Use
  Company Number: FR-BRISTOL-MYERS SQUIBB COMPANY-14827042

PATIENT
  Age: 57 Year
  Sex: Male

DRUGS (10)
  1. COAPROVEL TABS 150MG/12.5MG [Suspect]
     Indication: HYPERTENSION
     Dosage: 1 DF = 1(UNITS NOT SPECIFIED)
     Dates: end: 20090915
  2. METFORMIN HCL [Suspect]
     Indication: TYPE 2 DIABETES MELLITUS
     Dates: start: 20090701, end: 20090915
  3. XELEVIA [Suspect]
     Indication: TYPE 2 DIABETES MELLITUS
     Dosage: TAKEN FOR A MONTH
     Dates: start: 20090801, end: 20090915
  4. SEROPLEX [Suspect]
     Dates: end: 20090915
  5. NEXIUM [Concomitant]
  6. RIVOTRIL [Concomitant]
  7. DIFFU-K [Concomitant]
  8. SECALIP [Concomitant]
     Dosage: 1 DF = 300(UNITS NOT SPECIFIED) SECALIP 300
  9. NOCTRAN [Concomitant]
  10. ALPRAZOLAM [Concomitant]

REACTIONS (7)
  - ASTHENIA [None]
  - DIARRHOEA [None]
  - HYPERKALAEMIA [None]
  - MUSCLE SPASMS [None]
  - NAUSEA [None]
  - RENAL FAILURE ACUTE [None]
  - VOMITING [None]
